FAERS Safety Report 12456167 (Version 1)
Quarter: 2016Q2

REPORT INFORMATION
  Report Type: Spontaneous
  Country: US (occurrence: US)
  Receive Date: 20160610
  Receipt Date: 20160610
  Transmission Date: 20160815
  Serious: No
  Sender: FDA-Public Use
  Company Number: US-BAYER-2016-110419

PATIENT
  Age: 85 Year
  Sex: Female
  Weight: 75.28 kg

DRUGS (2)
  1. ALEVE [Suspect]
     Active Substance: NAPROXEN SODIUM
     Indication: ANALGESIC THERAPY
     Dosage: 1 DF, BID; MAY HAVE MISSED ONE DOSE OVER THE COURSE OF THE 18 DAYS
     Route: 048
     Dates: start: 20160513, end: 20160530
  2. ALEVE [Suspect]
     Active Substance: NAPROXEN SODIUM
     Indication: UPPER LIMB FRACTURE

REACTIONS (2)
  - Dizziness [Recovered/Resolved]
  - Product use issue [None]

NARRATIVE: CASE EVENT DATE: 20160513
